FAERS Safety Report 9915496 (Version 7)
Quarter: 2016Q3

REPORT INFORMATION
  Report Type: Report from Study
  Country: BR (occurrence: BR)
  Receive Date: 20140221
  Receipt Date: 20160706
  Transmission Date: 20161109
  Serious: Yes (Hospitalization, Other)
  Sender: FDA-Public Use
  Company Number: BR-ROCHE-1351340

PATIENT
  Sex: Female
  Weight: 48 kg

DRUGS (9)
  1. ACTEMRA [Suspect]
     Active Substance: TOCILIZUMAB
     Indication: RHEUMATOID ARTHRITIS
     Route: 042
     Dates: start: 20120703, end: 201303
  2. MICARDIS [Concomitant]
     Active Substance: TELMISARTAN
     Indication: HYPERTENSION
     Route: 065
  3. PRELONE [Concomitant]
     Active Substance: PREDNISOLONE
     Dosage: 2 TABLETS IN THE MORNING AND ANOTHER ONE AT NIGHT
     Route: 065
  4. METHOTREXATE. [Concomitant]
     Active Substance: METHOTREXATE
     Indication: ARTHRITIS
     Route: 065
  5. FOLIC ACID. [Concomitant]
     Active Substance: FOLIC ACID
  6. ATENOLOL. [Concomitant]
     Active Substance: ATENOLOL
     Indication: HYPERTENSION
     Dosage: ONE TABLET IN THE MORNING
     Route: 065
  7. NIMESULIDE [Concomitant]
     Active Substance: NIMESULIDE
  8. PARATRAM [Concomitant]
     Active Substance: ACETAMINOPHEN\TRAMADOL HYDROCHLORIDE
     Dosage: ONE TABLET AT NIGHT
     Route: 065
  9. CALTRATE [Concomitant]
     Active Substance: CALCIUM CARBONATE

REACTIONS (10)
  - Neuropathy peripheral [Unknown]
  - Intervertebral disc protrusion [Recovering/Resolving]
  - Impaired healing [Recovered/Resolved]
  - Ear discomfort [Unknown]
  - Device related infection [Unknown]
  - Ear pain [Unknown]
  - Hypoaesthesia [Unknown]
  - Pain in extremity [Unknown]
  - Gallbladder disorder [Recovering/Resolving]
  - Spinal disorder [Unknown]

NARRATIVE: CASE EVENT DATE: 2013
